FAERS Safety Report 6587684-7 (Version None)
Quarter: 2010Q1

REPORT INFORMATION
  Report Type: 
  Country: None (occurrence: None)
  Receive Date: 20100218
  Receipt Date: 20100128
  Transmission Date: 20100710
  Serious: Yes (Other)
  Sender: FDA-Public Use
  Company Number: US-BAYER-201014402GPV

PATIENT
  Age: 73 Year
  Sex: Male

DRUGS (1)
  1. ALEMTUZUMAB [Suspect]
     Indication: ANGIOIMMUNOBLASTIC T-CELL LYMPHOMA RECURRENT
     Dates: start: 20070601, end: 20070101

REACTIONS (3)
  - AGRANULOCYTOSIS [None]
  - ANAEMIA HAEMOLYTIC AUTOIMMUNE [None]
  - BRONCHOPULMONARY ASPERGILLOSIS [None]
